FAERS Safety Report 12975264 (Version 1)
Quarter: 2016Q4

REPORT INFORMATION
  Report Type: Spontaneous
  Country: US (occurrence: US)
  Receive Date: 20161125
  Receipt Date: 20161125
  Transmission Date: 20170207
  Serious: Yes (Other)
  Sender: FDA-Public Use
  Company Number: US-CLINIGEN GROUP PLC/ CLINIGEN HEALTHCARE LTD-E2B_00000233

PATIENT
  Age: 41 Year
  Sex: Male
  Weight: 87.5 kg

DRUGS (7)
  1. NEXIUM [Concomitant]
     Active Substance: ESOMEPRAZOLE MAGNESIUM
     Indication: GASTROOESOPHAGEAL REFLUX DISEASE
  2. RADIATION THERAPY [Concomitant]
     Active Substance: RADIATION THERAPY
  3. MORPHINE SULFATE. [Concomitant]
     Active Substance: MORPHINE SULFATE
     Indication: PAIN
     Dosage: EVERY 4-6 HOURS
  4. ETHYOL [Suspect]
     Active Substance: AMIFOSTINE
     Route: 058
     Dates: start: 20070416, end: 20070504
  5. KYTRIL (GRANISETRON) [Concomitant]
     Indication: PROPHYLAXIS OF NAUSEA AND VOMITING
     Dosage: 1/2 HOUR PRIOR TO ETHYOL
  6. ETHYOL [Suspect]
     Active Substance: AMIFOSTINE
     Indication: RADIOTHERAPY
     Route: 058
     Dates: start: 20070313, end: 20070415
  7. VALTREX [Concomitant]
     Active Substance: VALACYCLOVIR HYDROCHLORIDE
     Indication: HERPES ZOSTER
     Dates: start: 20070228

REACTIONS (2)
  - Diabetes mellitus [Unknown]
  - Candida infection [Recovered/Resolved]

NARRATIVE: CASE EVENT DATE: 20070416
